FAERS Safety Report 8925841 (Version 2)
Quarter: 2013Q2

REPORT INFORMATION
  Report Type: Report from Study
  Country: BR (occurrence: BR)
  Receive Date: 20121126
  Receipt Date: 20130418
  Transmission Date: 20140414
  Serious: Yes (Life-Threatening, Other)
  Sender: FDA-Public Use
  Company Number: PHHY2012BR106922

PATIENT
  Sex: Female

DRUGS (3)
  1. DIOVAN AMLO FIX [Suspect]
     Indication: HYPERTENSION
     Dosage: 1 DF (VALS 320 MG, AMLO 5 MG), DAILY
     Route: 048
     Dates: start: 201210, end: 201211
  2. DIOVAN [Suspect]
     Indication: HYPERTENSION
     Dosage: 1 DF, DAILY
     Route: 048
     Dates: end: 201206
  3. DIOVAN [Suspect]
     Dosage: 1 DF, UNK
     Route: 048

REACTIONS (4)
  - Apparent death [Recovering/Resolving]
  - Fall [Recovering/Resolving]
  - Limb discomfort [Recovering/Resolving]
  - Local swelling [Recovered/Resolved]
